FAERS Safety Report 4870017-1 (Version None)
Quarter: 2005Q4

REPORT INFORMATION
  Report Type: 
  Country: None (occurrence: None)
  Receive Date: 20051223
  Receipt Date: 20051212
  Transmission Date: 20060501
  Serious: Yes (Death, Life-Threatening)
  Sender: FDA-Public Use
  Company Number: HQWYE170117MAR05

PATIENT
  Age: 68 Year
  Sex: Female

DRUGS (3)
  1. MYLOTARG [Suspect]
     Indication: ACUTE MYELOID LEUKAEMIA
     Dosage: SINGLE DOSE OF 11.4 MG, INTRAVENOUS
     Route: 042
     Dates: start: 20041205, end: 20041205
  2. CYTARABINE [Suspect]
     Indication: ACUTE MYELOID LEUKAEMIA
     Dates: start: 20041201, end: 20041201
  3. DAUNORUBICIN HCL [Suspect]
     Indication: ACUTE MYELOID LEUKAEMIA
     Dates: start: 20041201, end: 20041201

REACTIONS (5)
  - DISEASE PROGRESSION [None]
  - DRUG TOXICITY [None]
  - FEBRILE NEUTROPENIA [None]
  - PNEUMONIA [None]
  - POST PROCEDURAL COMPLICATION [None]
